FAERS Safety Report 13033808 (Version 1)
Quarter: 2016Q4

REPORT INFORMATION
  Report Type: Spontaneous
  Country: IN (occurrence: IN)
  Receive Date: 20161216
  Receipt Date: 20161216
  Transmission Date: 20170207
  Serious: No
  Sender: FDA-Public Use
  Company Number: IN-LUPIN PHARMACEUTICALS INC.-E2B_00006736

PATIENT
  Age: 25 Year
  Sex: Female

DRUGS (1)
  1. YAMINI LS [Suspect]
     Active Substance: DROSPIRENONE\ETHINYL ESTRADIOL
     Indication: MENSTRUATION IRREGULAR
     Dosage: PATIENT TOLD TO TAKE MEDICINE ONLY WHEN MENSTRUAL BLEEDING OCCURS
     Route: 048
     Dates: start: 20161119

REACTIONS (3)
  - No adverse event [Unknown]
  - Product use issue [Unknown]
  - Drug prescribing error [Unknown]

NARRATIVE: CASE EVENT DATE: 20161119
